FAERS Safety Report 24617331 (Version 1)
Quarter: 2024Q4

REPORT INFORMATION
  Report Type: Report from Study
  Country: US (occurrence: US)
  Receive Date: 20241114
  Receipt Date: 20241114
  Transmission Date: 20250115
  Serious: Yes (Hospitalization, Other)
  Sender: ACADIA PHARMACEUTICALS
  Company Number: US-ACADIA PHARMACEUTICALS INC.-ACA-2024-PIM-006776

PATIENT
  Age: 83 Year
  Sex: Male

DRUGS (18)
  1. NUPLAZID [Suspect]
     Active Substance: PIMAVANSERIN TARTRATE
     Indication: Parkinson^s disease
     Dosage: 34 MILLIGRAM
     Route: 048
     Dates: start: 20210901
  2. QUETIAPINE [Concomitant]
     Active Substance: QUETIAPINE
  3. CARBIDOPA LEVODOPA [Concomitant]
     Active Substance: CARBIDOPA\LEVODOPA
  4. FAMOTIDINE [Concomitant]
     Active Substance: FAMOTIDINE
  5. FUROSEMIDE [Concomitant]
     Active Substance: FUROSEMIDE
  6. LOSARTAN [Concomitant]
     Active Substance: LOSARTAN
  7. METOPROLOL SUCCINATE [Concomitant]
     Active Substance: METOPROLOL SUCCINATE
  8. SPIRONOLACTONE [Concomitant]
     Active Substance: SPIRONOLACTONE
  9. TERAZOSIN [Concomitant]
     Active Substance: TERAZOSIN HYDROCHLORIDE
  10. GLYCOPYRROLATE [Concomitant]
     Active Substance: GLYCOPYRROLATE
  11. ROPINIROLE [Concomitant]
     Active Substance: ROPINIROLE
  12. ELIQUIS [Concomitant]
     Active Substance: APIXABAN
  13. VITAMIN B12 [Concomitant]
     Active Substance: CYANOCOBALAMIN
  14. LOVASTATIN [Concomitant]
     Active Substance: LOVASTATIN
  15. LATANOPROST [Concomitant]
     Active Substance: LATANOPROST
  16. AMANTADINE [Concomitant]
     Active Substance: AMANTADINE
  17. GOCOVRI [Concomitant]
     Active Substance: AMANTADINE
  18. ENTACAPONE [Concomitant]
     Active Substance: ENTACAPONE

REACTIONS (8)
  - Muscular weakness [Not Recovered/Not Resolved]
  - Mania [Not Recovered/Not Resolved]
  - Dysstasia [Not Recovered/Not Resolved]
  - Mobility decreased [Not Recovered/Not Resolved]
  - General physical health deterioration [Not Recovered/Not Resolved]
  - Hallucination [Recovered/Resolved]
  - Somnolence [Not Recovered/Not Resolved]
  - Fall [Not Recovered/Not Resolved]

NARRATIVE: CASE EVENT DATE: 20240601
